FAERS Safety Report 6221610-5 (Version None)
Quarter: 2009Q2

REPORT INFORMATION
  Report Type: 
  Country: None (occurrence: None)
  Receive Date: 20090610
  Receipt Date: 20090602
  Transmission Date: 20091009
  Serious: Yes (Hospitalization)
  Sender: FDA-Public Use
  Company Number: CZ-ABBOTT-09P-217-0570665-00

PATIENT
  Sex: Female

DRUGS (3)
  1. SEVOFLURANE [Suspect]
     Indication: HERNIA REPAIR
     Route: 055
     Dates: start: 20090421, end: 20090421
  2. PROPOFOL FRESENIUS [Concomitant]
     Indication: DRUG USE FOR UNKNOWN INDICATION
  3. PLASMA-LYTE 56 AND DEXTROSE 5% IN PLASTIC CONTAINER [Concomitant]
     Indication: DRUG USE FOR UNKNOWN INDICATION

REACTIONS (9)
  - C-REACTIVE PROTEIN INCREASED [None]
  - COAGULOPATHY [None]
  - HAEMODYNAMIC INSTABILITY [None]
  - HYPOTENSION [None]
  - LIVER DISORDER [None]
  - PROCALCITONIN INCREASED [None]
  - SHOCK [None]
  - TACHYCARDIA [None]
  - THROMBOCYTOPENIA [None]
